FAERS Safety Report 6011045-2 (Version None)
Quarter: 2008Q4

REPORT INFORMATION
  Report Type: 
  Country: None (occurrence: None)
  Receive Date: 20081218
  Receipt Date: 20081205
  Transmission Date: 20090506
  Serious: Yes (Hospitalization, Other)
  Sender: FDA-Public Use
  Company Number: US-PFIZER INC-2008153899

PATIENT
  Sex: Female
  Weight: 64.399 kg

DRUGS (2)
  1. CHANTIX [Suspect]
     Dates: start: 20080101, end: 20080101
  2. FENTANYL [Concomitant]
     Dosage: UNK
     Route: 062

REACTIONS (6)
  - AGGRESSION [None]
  - ANGER [None]
  - FOOT FRACTURE [None]
  - SUICIDAL IDEATION [None]
  - SUICIDE ATTEMPT [None]
  - VIOLENCE-RELATED SYMPTOM [None]
